FAERS Safety Report 6194071-2 (Version None)
Quarter: 2009Q2

REPORT INFORMATION
  Report Type: 
  Country: None (occurrence: None)
  Receive Date: 20090518
  Receipt Date: 20090511
  Transmission Date: 20091009
  Serious: Yes (Other)
  Sender: FDA-Public Use
  Company Number: US-JNJCH-2009013122

PATIENT
  Age: 62 Year
  Sex: Female

DRUGS (2)
  1. ZYRTEC [Suspect]
     Indication: HYPERSENSITIVITY
     Route: 048
  2. ALLEGRA [Concomitant]
     Indication: DRUG USE FOR UNKNOWN INDICATION
     Dosage: TEXT:60 MG DAILY
     Route: 065

REACTIONS (5)
  - ADVERSE EVENT [None]
  - FATIGUE [None]
  - MALAISE [None]
  - SOMNOLENCE [None]
  - VERTIGO [None]
